FAERS Safety Report 17944877 (Version 1)
Quarter: 2020Q2

REPORT INFORMATION
  Report Type: Report from Study
  Country: None (occurrence: US)
  Receive Date: 20200626
  Receipt Date: 20200626
  Transmission Date: 20200714
  Serious: Yes (Hospitalization, Other)
  Sender: FDA-Public Use
  Company Number: US-ABBVIE-20K-163-3459533-00

PATIENT
  Sex: Female

DRUGS (2)
  1. HUMIRA [Suspect]
     Active Substance: ADALIMUMAB
     Indication: RHEUMATOID ARTHRITIS
     Route: 058
     Dates: end: 20200508
  2. VALIUM [Suspect]
     Active Substance: DIAZEPAM
     Indication: PRODUCT USED FOR UNKNOWN INDICATION
     Route: 065

REACTIONS (8)
  - Spinal operation [Recovering/Resolving]
  - Scoliosis [Recovering/Resolving]
  - Eating disorder [Unknown]
  - Muscle disorder [Unknown]
  - Neuralgia [Unknown]
  - Procedural pain [Unknown]
  - Restlessness [Unknown]
  - Hypertrichosis [Unknown]

NARRATIVE: CASE EVENT DATE: 2020
